FAERS Safety Report 21328551 (Version 4)
Quarter: 2022Q4

REPORT INFORMATION
  Report Type: Spontaneous
  Country: FR (occurrence: FR)
  Receive Date: 20220913
  Receipt Date: 20221029
  Transmission Date: 20230113
  Serious: Yes (Hospitalization)
  Sender: FDA-Public Use
  Company Number: None

PATIENT
  Age: 53 Year
  Sex: Male
  Weight: 77 kg

DRUGS (12)
  1. PANTOPRAZOLE [Suspect]
     Active Substance: PANTOPRAZOLE
     Indication: Gastrooesophageal reflux disease
     Dosage: 20 MG, QD
     Route: 048
     Dates: start: 20220625, end: 20220704
  2. BISOPROLOL FUMARATE [Suspect]
     Active Substance: BISOPROLOL FUMARATE
     Indication: Myocardial ischaemia
     Dosage: 1.25 MG, QD
     Route: 048
     Dates: start: 20220625, end: 20220704
  3. BISOPROLOL FUMARATE [Suspect]
     Active Substance: BISOPROLOL FUMARATE
     Dosage: 1 MG, QD
     Route: 048
     Dates: start: 20220625, end: 20220704
  4. BISOPROLOL FUMARATE [Suspect]
     Active Substance: BISOPROLOL FUMARATE
     Dosage: 1 MG, QD
     Route: 048
     Dates: start: 20220625, end: 20220704
  5. RAMIPRIL [Suspect]
     Active Substance: RAMIPRIL
     Indication: Myocardial ischaemia
     Dosage: 2.5 MG, QD
     Route: 048
     Dates: start: 20220625, end: 20220704
  6. RAMIPRIL [Suspect]
     Active Substance: RAMIPRIL
     Dosage: 3 MG, QD
     Route: 048
     Dates: start: 20220625, end: 20220704
  7. RAMIPRIL [Suspect]
     Active Substance: RAMIPRIL
     Dosage: 3 MG, QD
     Route: 048
     Dates: start: 20220625, end: 20220704
  8. OXAZEPAM [Suspect]
     Active Substance: OXAZEPAM
     Indication: Prophylaxis against alcoholic withdrawal syndrome
     Dosage: 10 MG, QD, 0-0-0-1
     Route: 048
     Dates: start: 20220625, end: 20220704
  9. TICAGRELOR [Suspect]
     Active Substance: TICAGRELOR
     Indication: Myocardial ischaemia
     Dosage: 90 MG, Q12H (1-0-1)
     Route: 048
     Dates: start: 20220625, end: 20220704
  10. KARDEGIC [Suspect]
     Active Substance: ASPIRIN DL-LYSINE
     Indication: Myocardial ischaemia
     Dosage: 75 MG, QD, POWDER FOR ORAL SOLUTION IN SACHET DOSE
     Route: 048
     Dates: start: 20220625
  11. ATORVASTATIN [Suspect]
     Active Substance: ATORVASTATIN
     Indication: Myocardial ischaemia
     Dosage: 80 MG, QD
     Route: 048
     Dates: start: 20220625
  12. CYANOCOBALAMIN\PYRIDOXINE HYDROCHLORIDE\THIAMINE [Suspect]
     Active Substance: CYANOCOBALAMIN\PYRIDOXINE HYDROCHLORIDE\THIAMINE
     Indication: Prophylaxis against alcoholic withdrawal syndrome
     Dosage: 2 DOSAGE FORM, QD (2-0-0)
     Route: 048
     Dates: start: 20220625, end: 20220704

REACTIONS (1)
  - Urticaria [Recovering/Resolving]

NARRATIVE: CASE EVENT DATE: 20220627
